FAERS Safety Report 5693556-2 (Version None)
Quarter: 2008Q2

REPORT INFORMATION
  Report Type: 
  Country: None (occurrence: None)
  Receive Date: 20080402
  Receipt Date: 20080402
  Transmission Date: 20081010
  Serious: No
  Sender: FDA-Public Use
  Company Number: None

PATIENT
  Age: 7 Year
  Sex: Male
  Weight: 34.4734 kg

DRUGS (2)
  1. SINGULAIR [Suspect]
     Indication: ASTHMA
     Dosage: 1TABLET ONCE A DAY
     Dates: start: 20040101, end: 20080401
  2. SINGULAIR [Suspect]
     Indication: HYPERSENSITIVITY
     Dosage: 1TABLET ONCE A DAY
     Dates: start: 20040101, end: 20080401

REACTIONS (4)
  - ANGER [None]
  - ANXIETY [None]
  - DEPRESSION [None]
  - MOOD SWINGS [None]
